FAERS Safety Report 7469014-1 (Version None)
Quarter: 2011Q2

REPORT INFORMATION
  Report Type: 
  Country: None (occurrence: None)
  Receive Date: 20110510
  Receipt Date: 20110426
  Transmission Date: 20111010
  Serious: Yes (Other)
  Sender: FDA-Public Use
  Company Number: US-JNJFOC-20110410054

PATIENT
  Sex: Female
  Weight: 58.97 kg

DRUGS (5)
  1. ROCEPHIN [Suspect]
     Indication: PRODUCT USED FOR UNKNOWN INDICATION
     Route: 065
  2. UNKNOWN MEDICATION [Suspect]
     Indication: RESPIRATORY DISORDER
     Route: 065
  3. SERTRALINE HYDROCHLORIDE [Concomitant]
     Indication: ANXIETY
     Route: 048
  4. LEVAQUIN [Suspect]
     Indication: PNEUMONIA
     Dosage: FOR 10 DAYS
     Route: 048
  5. SERTRALINE HYDROCHLORIDE [Concomitant]
     Indication: DEPRESSION
     Route: 048

REACTIONS (2)
  - ARTHRITIS [None]
  - ROTATOR CUFF SYNDROME [None]
